FAERS Safety Report 20319838 (Version 1)
Quarter: 2022Q1

REPORT INFORMATION
  Report Type: Report from Study
  Country: NZ (occurrence: NZ)
  Receive Date: 20220111
  Receipt Date: 20220111
  Transmission Date: 20220423
  Serious: Yes (Hospitalization)
  Sender: FDA-Public Use
  Company Number: NZ-NOVARTISPH-NVSC2021NZ213899

PATIENT
  Age: 44 Year
  Sex: Female

DRUGS (2)
  1. COSENTYX [Suspect]
     Active Substance: SECUKINUMAB
     Indication: Psoriatic arthropathy
     Dosage: 300 MG, QMO
     Route: 058
     Dates: start: 20210629
  2. COSENTYX [Suspect]
     Active Substance: SECUKINUMAB
     Dosage: 150 MG, QMO
     Route: 058

REACTIONS (11)
  - Gastritis [Unknown]
  - Secretion discharge [Not Recovered/Not Resolved]
  - Mouth ulceration [Recovering/Resolving]
  - Pruritus [Unknown]
  - Blister [Unknown]
  - Acne [Unknown]
  - Wound [Unknown]
  - Oesophageal disorder [Unknown]
  - Oesophageal pain [Unknown]
  - Dysphagia [Unknown]
  - Candida infection [Unknown]

NARRATIVE: CASE EVENT DATE: 20210901
